FAERS Safety Report 5937819-1 (Version None)
Quarter: 2008Q4

REPORT INFORMATION
  Report Type: 
  Country: None (occurrence: None)
  Receive Date: 20081029
  Receipt Date: 20081023
  Transmission Date: 20090506
  Serious: Yes (Death)
  Sender: FDA-Public Use
  Company Number: 2008SP011879

PATIENT
  Age: 60 Year
  Sex: Male
  Weight: 60 kg

DRUGS (5)
  1. TEMODAL [Suspect]
     Indication: GLIOBLASTOMA MULTIFORME
     Dosage: ; QD; PO
     Route: 048
     Dates: start: 20060401, end: 20060901
  2. PREDNISOLONE [Suspect]
     Indication: GLIOBLASTOMA MULTIFORME
     Dosage: 20 MG; ; PO
     Route: 048
     Dates: start: 20060425, end: 20070322
  3. NIDRAN (NIMUSTINE HYDROCHLORIDE) [Suspect]
     Indication: GLIOBLASTOMA MULTIFORME
     Dosage: ; IV
     Route: 042
     Dates: start: 20061001, end: 20061101
  4. FERON [Concomitant]
  5. AMLODIN [Concomitant]

REACTIONS (3)
  - DIFFUSE LARGE B-CELL LYMPHOMA [None]
  - MALIGNANT NEOPLASM PROGRESSION [None]
  - RECURRENT CANCER [None]
